FAERS Safety Report 4407481-8 (Version None)
Quarter: 2004Q3

REPORT INFORMATION
  Report Type: 
  Country: None (occurrence: None)
  Receive Date: 20040721
  Receipt Date: 20040701
  Transmission Date: 20050211
  Serious: Yes (Other)
  Sender: FDA-Public Use
  Company Number: GBS040514935

PATIENT
  Age: 9 Year
  Sex: Male

DRUGS (2)
  1. PROZAC [Suspect]
     Indication: ABNORMAL BEHAVIOUR
     Dosage: 40 MG DAY
     Dates: start: 20040315, end: 20040323
  2. PROZAC [Suspect]
     Indication: AUTISM
     Dosage: 40 MG DAY
     Dates: start: 20040315, end: 20040323

REACTIONS (1)
  - MEDICATION ERROR [None]
